FAERS Safety Report 8250964-3 (Version None)
Quarter: 2012Q2

REPORT INFORMATION
  Report Type: 
  Country: None (occurrence: None)
  Receive Date: 20120402
  Receipt Date: 20120326
  Transmission Date: 20120825
  Serious: Yes (Hospitalization)
  Sender: FDA-Public Use
  Company Number: US-BAYER-2011-089748

PATIENT
  Age: 20 Year
  Sex: Female
  Weight: 45 kg

DRUGS (4)
  1. MOTRIN [Concomitant]
  2. YAZ [Suspect]
     Indication: ORAL CONTRACEPTION
     Dosage: UNK
     Route: 048
     Dates: start: 20090701, end: 20090801
  3. IBUPROFEN (ADVIL) [Concomitant]
  4. ASCORBIC ACID [Concomitant]

REACTIONS (6)
  - PULMONARY EMBOLISM [None]
  - PAIN [None]
  - ANXIETY [None]
  - INJURY [None]
  - EMOTIONAL DISTRESS [None]
  - PSYCHOLOGICAL TRAUMA [None]
